FAERS Safety Report 14268229 (Version 1)
Quarter: 2017Q4

REPORT INFORMATION
  Report Type: Not Available
  Country: US (occurrence: US)
  Receive Date: 20171211
  Receipt Date: 20171211
  Transmission Date: 20180321
  Serious: Yes (Hospitalization)
  Sender: FDA-Public Use
  Company Number: US-ANIPHARMA-2017-US-005789

PATIENT
  Age: 33 Year
  Sex: Male
  Weight: 65.77 kg

DRUGS (1)
  1. VANCOMYCIN HYDROCHLORIDE CAPSULES [Suspect]
     Active Substance: VANCOMYCIN HYDROCHLORIDE
     Dosage: 1 CAP 4 TIMES DAILY
     Route: 048
     Dates: start: 20170507

REACTIONS (4)
  - Drug ineffective [Recovering/Resolving]
  - Off label use [Recovering/Resolving]
  - Pyrexia [Recovering/Resolving]
  - Abdominal pain [Recovering/Resolving]

NARRATIVE: CASE EVENT DATE: 201705
